FAERS Safety Report 4378253-8 (Version None)
Quarter: 2004Q2

REPORT INFORMATION
  Report Type: 
  Country: None (occurrence: None)
  Receive Date: 20040609
  Receipt Date: 20040527
  Transmission Date: 20050107
  Serious: Yes (Death, Other)
  Sender: FDA-Public Use
  Company Number: FR_040403838

PATIENT
  Age: 30 Year
  Sex: Female
  Weight: 70 kg

DRUGS (3)
  1. ZYPREXA [Suspect]
     Indication: SCHIZOPHRENIA
     Dosage: 20 MG 1 DAY
     Route: 048
  2. ZYPREXA [Suspect]
     Indication: SCHIZOPHRENIA
     Dosage: 10 MG/1 OTHER
     Route: 030
     Dates: start: 20040322, end: 20040323
  3. CLOZAPINE [Concomitant]

REACTIONS (6)
  - ASPHYXIA [None]
  - HEAD INJURY [None]
  - LUNG DISORDER [None]
  - MENDELSON'S SYNDROME [None]
  - PULMONARY OEDEMA [None]
  - SUICIDE ATTEMPT [None]
